FAERS Safety Report 13388887 (Version 1)
Quarter: 2017Q1

REPORT INFORMATION
  Report Type: Spontaneous
  Country: AU (occurrence: AU)
  Receive Date: 20170330
  Receipt Date: 20170330
  Transmission Date: 20170429
  Serious: Yes (Disabling, Other)
  Sender: FDA-Public Use
  Company Number: AU-009507513-1703AUS012666

PATIENT
  Age: 61 Year
  Sex: Male

DRUGS (1)
  1. KEYTRUDA [Suspect]
     Active Substance: PEMBROLIZUMAB

REACTIONS (4)
  - Abasia [Recovering/Resolving]
  - Musculoskeletal disorder [Recovering/Resolving]
  - Anger [Unknown]
  - Arthralgia [Recovering/Resolving]
